FAERS Safety Report 7676522-7 (Version None)
Quarter: 2011Q3

REPORT INFORMATION
  Report Type: 
  Country: None (occurrence: None)
  Receive Date: 20110805
  Receipt Date: 20110722
  Transmission Date: 20111222
  Serious: Yes (Life-Threatening)
  Sender: FDA-Public Use
  Company Number: LTI2011A00220

PATIENT
  Age: 76 Year
  Sex: Male

DRUGS (5)
  1. ACTOS [Suspect]
     Indication: TYPE 2 DIABETES MELLITUS
     Dosage: 30 MG (30 MG,1 IN 1 D) ORAL : 15 MG (15 MG,1 IN 1 D) ORAL
     Route: 048
     Dates: start: 20100301, end: 20110501
  2. ACTOS [Suspect]
     Indication: TYPE 2 DIABETES MELLITUS
     Dosage: 30 MG (30 MG,1 IN 1 D) ORAL : 15 MG (15 MG,1 IN 1 D) ORAL
     Route: 048
     Dates: start: 20040101, end: 20100501
  3. XELEVIA(SITAGLIPTIN) [Concomitant]
  4. RAMIPRIL [Concomitant]
  5. DIAMICRON(GLICLAZIDE) [Concomitant]

REACTIONS (4)
  - HAEMATURIA [None]
  - POLLAKIURIA [None]
  - DYSURIA [None]
  - BLADDER CANCER [None]
